FAERS Safety Report 6594613-9 (Version None)
Quarter: 2010Q1

REPORT INFORMATION
  Report Type: 
  Country: None (occurrence: None)
  Receive Date: 20100222
  Receipt Date: 20090403
  Transmission Date: 20100710
  Serious: Yes (Hospitalization)
  Sender: FDA-Public Use
  Company Number: US-BRISTOL-MYERS SQUIBB COMPANY-14565980

PATIENT
  Sex: Male

DRUGS (2)
  1. ERBITUX [Suspect]
     Indication: OESOPHAGEAL CARCINOMA
     Dosage: ROUTE: VIA MEDI-PORT
     Dates: start: 20051014, end: 20051014
  2. TAXOL [Suspect]

REACTIONS (4)
  - EYELID BLEEDING [None]
  - PNEUMONIA [None]
  - PYREXIA [None]
  - RASH [None]
